FAERS Safety Report 6029780-9 (Version None)
Quarter: 2008Q4

REPORT INFORMATION
  Report Type: 
  Country: None (occurrence: None)
  Receive Date: 20081222
  Receipt Date: 20081007
  Transmission Date: 20090506
  Serious: No
  Sender: FDA-Public Use
  Company Number: US-WYE-H06286708

PATIENT
  Age: 49 Year
  Sex: Female
  Weight: 104.42 kg

DRUGS (5)
  1. PRISTIQ [Suspect]
     Indication: DEPRESSION
     Dosage: 50 MG 1X PER 1 DAY ORAL
     Route: 048
     Dates: start: 20080826
  2. COUMADIN [Concomitant]
  3. LEVOTHROID [Concomitant]
  4. MULTIVITAMINE, PAIN (MULTIVITAMINE, PAIN) [Concomitant]
  5. ACETAMINOPHEN [Concomitant]

REACTIONS (7)
  - CONDITION AGGRAVATED [None]
  - CONSTIPATION [None]
  - DIARRHOEA [None]
  - DRY MOUTH [None]
  - HEADACHE [None]
  - INSOMNIA [None]
  - NECK PAIN [None]
